FAERS Safety Report 11877462 (Version 1)
Quarter: 2015Q4

REPORT INFORMATION
  Report Type: Report from Study
  Country: AU (occurrence: AU)
  Receive Date: 20151229
  Receipt Date: 20151229
  Transmission Date: 20160305
  Serious: Yes (Other)
  Sender: FDA-Public Use
  Company Number: AU-BIOGEN-2015BI00166043

PATIENT
  Age: 49 Year
  Sex: Female

DRUGS (3)
  1. PLEGRIDY [Suspect]
     Active Substance: PEGINTERFERON BETA-1A
     Indication: MULTIPLE SCLEROSIS
     Route: 058
     Dates: start: 20150630, end: 20150714
  2. PLEGRIDY [Interacting]
     Active Substance: PEGINTERFERON BETA-1A
     Route: 058
     Dates: start: 20150714
  3. PLEGRIDY [Interacting]
     Active Substance: PEGINTERFERON BETA-1A
     Route: 058
     Dates: end: 20151112

REACTIONS (4)
  - Pulmonary thrombosis [Unknown]
  - Injection site erythema [Not Recovered/Not Resolved]
  - Thrombosis [Unknown]
  - Headache [Unknown]

NARRATIVE: CASE EVENT DATE: 201511
